FAERS Safety Report 24399292 (Version 1)
Quarter: 2024Q4

REPORT INFORMATION
  Report Type: Spontaneous
  Country: US (occurrence: US)
  Receive Date: 20241004
  Receipt Date: 20241004
  Transmission Date: 20250115
  Serious: No
  Sender: JOHNSON AND JOHNSON
  Company Number: US-JNJFOC-20241001687

PATIENT
  Age: 88 Year
  Sex: Male

DRUGS (1)
  1. CHILDRENS ZYRTEC ALLERGY [Suspect]
     Active Substance: CETIRIZINE HYDROCHLORIDE
     Indication: Product used for unknown indication
     Dosage: 1 DISSOLVE TAB ONCE
     Route: 048
     Dates: start: 20240928

REACTIONS (3)
  - Dry throat [Unknown]
  - Dry skin [Unknown]
  - Product administration error [Unknown]

NARRATIVE: CASE EVENT DATE: 20240928
